FAERS Safety Report 5913300-0 (Version None)
Quarter: 2008Q4

REPORT INFORMATION
  Report Type: 
  Country: None (occurrence: None)
  Receive Date: 20081008
  Receipt Date: 20081008
  Transmission Date: 20090506
  Serious: Yes (Hospitalization)
  Sender: FDA-Public Use
  Company Number: None

PATIENT
  Age: 30 Year
  Sex: Male

DRUGS (1)
  1. TOPIRAMATE [Suspect]
     Indication: CONVULSION
     Dosage: 200MG TID PO
     Route: 048
     Dates: start: 20080801, end: 20080901

REACTIONS (2)
  - HALLUCINATION [None]
  - PSYCHOTIC DISORDER [None]
